FAERS Safety Report 25042989 (Version 5)
Quarter: 2025Q2

REPORT INFORMATION
  Report Type: Spontaneous
  Country: US (occurrence: US)
  Receive Date: 20250305
  Receipt Date: 20250603
  Transmission Date: 20250716
  Serious: No
  Sender: KARYOPHARM THERAPEUTICS
  Company Number: US-KARYOPHARM-2025KPT000218

PATIENT

DRUGS (12)
  1. XPOVIO [Suspect]
     Active Substance: SELINEXOR
     Indication: Plasma cell myeloma
     Route: 048
     Dates: start: 20250227, end: 202503
  2. XPOVIO [Suspect]
     Active Substance: SELINEXOR
     Route: 048
     Dates: start: 2025
  3. XPOVIO [Suspect]
     Active Substance: SELINEXOR
     Route: 048
     Dates: start: 2025, end: 2025
  4. DEXAMETHASONE [Concomitant]
     Active Substance: DEXAMETHASONE
  5. ELIQUIS [Concomitant]
     Active Substance: APIXABAN
  6. LISINOPRIL [Concomitant]
     Active Substance: LISINOPRIL
  7. ONDANSETRON [Concomitant]
     Active Substance: ONDANSETRON
  8. PANTOPRAZOLE [Concomitant]
     Active Substance: PANTOPRAZOLE
  9. ROSUVASTATIN [Concomitant]
     Active Substance: ROSUVASTATIN
  10. VALACYCLOVIR HYDROCHLORIDE [Concomitant]
     Active Substance: VALACYCLOVIR HYDROCHLORIDE
  11. ALBUTEROL SULFATE [Concomitant]
     Active Substance: ALBUTEROL SULFATE
  12. CLOTRIMAZOLE [Concomitant]
     Active Substance: CLOTRIMAZOLE

REACTIONS (5)
  - Bronchitis [Recovered/Resolved]
  - Platelet count decreased [Unknown]
  - Protein total decreased [Unknown]
  - Fungal skin infection [Unknown]
  - Drug ineffective [Unknown]

NARRATIVE: CASE EVENT DATE: 20250101
